FAERS Safety Report 15686114 (Version 1)
Quarter: 2018Q4

REPORT INFORMATION
  Report Type: Not Available
  Country: US (occurrence: US)
  Receive Date: 20181204
  Receipt Date: 20181204
  Transmission Date: 20190205
  Serious: No
  Sender: FDA-Public Use
  Company Number: US-NEUROCRINE BIOSCIENCES INC.-2018NBI03366

PATIENT
  Age: 49 Year
  Sex: Male

DRUGS (1)
  1. INGREZZA [Suspect]
     Active Substance: VALBENAZINE
     Indication: TARDIVE DYSKINESIA
     Dates: start: 201809, end: 20181118

REACTIONS (3)
  - Speech disorder [Unknown]
  - Muscular weakness [Unknown]
  - Mastication disorder [Unknown]

NARRATIVE: CASE EVENT DATE: 2018
